FAERS Safety Report 7619644-9 (Version None)
Quarter: 2011Q3

REPORT INFORMATION
  Report Type: 
  Country: None (occurrence: None)
  Receive Date: 20110719
  Receipt Date: 20110711
  Transmission Date: 20111222
  Serious: Yes (Death)
  Sender: FDA-Public Use
  Company Number: GB-GENZYME-FLUD-1001310

PATIENT

DRUGS (6)
  1. BUSULFAN [Suspect]
     Indication: ACUTE LEUKAEMIA
  2. FLUDARA [Suspect]
     Indication: BONE MARROW CONDITIONING REGIMEN
     Dosage: UNK
     Route: 065
  3. FLUDARA [Suspect]
     Indication: ACUTE LEUKAEMIA
  4. BUSULFAN [Suspect]
     Indication: BONE MARROW CONDITIONING REGIMEN
     Dosage: UNK
     Route: 065
  5. CAMPATH [Suspect]
     Indication: CHRONIC LYMPHOCYTIC LEUKAEMIA
     Dosage: UNK
     Route: 065
  6. CAMPATH [Suspect]
     Indication: ACUTE LEUKAEMIA

REACTIONS (2)
  - GRAFT VERSUS HOST DISEASE [None]
  - CYTOMEGALOVIRUS INFECTION [None]
